FAERS Safety Report 8087669-8 (Version None)
Quarter: 2012Q1

REPORT INFORMATION
  Report Type: 
  Country: None (occurrence: None)
  Receive Date: 20120128
  Receipt Date: 20110407
  Transmission Date: 20120608
  Serious: Yes (Other)
  Sender: FDA-Public Use
  Company Number: US-ABBOTT-11P-163-0717992-00

PATIENT
  Age: 49 Year
  Sex: Female
  Weight: 53.572 kg

DRUGS (7)
  1. MOBIC [Concomitant]
     Indication: ARTHRITIS
  2. HUMIRA [Suspect]
     Route: 058
     Dates: end: 20100901
  3. HYDROCODONE BITARTRATE [Concomitant]
     Indication: PAIN
     Dates: start: 20100901
  4. HUMIRA [Suspect]
     Route: 058
     Dates: start: 20091001
  5. PLAQUENIL [Concomitant]
     Indication: ARTHRITIS
  6. HYDROCODONE BITARTRATE [Concomitant]
     Indication: PROCEDURAL PAIN
  7. HUMIRA [Suspect]
     Indication: ARTHRITIS
     Route: 058
     Dates: start: 20101001, end: 20110101

REACTIONS (3)
  - DRUG INEFFECTIVE [None]
  - PAIN IN EXTREMITY [None]
  - ARTHRITIS [None]
